FAERS Safety Report 17445950 (Version 1)
Quarter: 2020Q1

REPORT INFORMATION
  Report Type: Spontaneous
  Country: ES (occurrence: ES)
  Receive Date: 20200221
  Receipt Date: 20200221
  Transmission Date: 20200409
  Serious: Yes (Hospitalization)
  Sender: FDA-Public Use
  Company Number: ES-MYLANLABS-2020M1018372

PATIENT
  Age: 94 Year
  Sex: Female

DRUGS (1)
  1. DILTIAZEM. [Suspect]
     Active Substance: DILTIAZEM
     Indication: PRODUCT USED FOR UNKNOWN INDICATION
     Dosage: UNK
     Dates: start: 20110828, end: 20190918

REACTIONS (1)
  - Bradyarrhythmia [Recovered/Resolved]

NARRATIVE: CASE EVENT DATE: 20190918
